FAERS Safety Report 5316651-6 (Version None)
Quarter: 2007Q2

REPORT INFORMATION
  Report Type: 
  Country: None (occurrence: None)
  Receive Date: 20070504
  Receipt Date: 20070427
  Transmission Date: 20071010
  Serious: Yes (Other)
  Sender: FDA-Public Use
  Company Number: JP-AVENTIS-200711143JP

PATIENT

DRUGS (1)
  1. AMARYL [Suspect]
     Indication: DIABETES MELLITUS
     Route: 048

REACTIONS (1)
  - EOSINOPHILIC PNEUMONIA [None]
